FAERS Safety Report 19397084 (Version 2)
Quarter: 2021Q2

REPORT INFORMATION
  Report Type: Spontaneous
  Country: US (occurrence: US)
  Receive Date: 20210609
  Receipt Date: 20210616
  Transmission Date: 20210717
  Serious: No
  Sender: FDA-Public Use
  Company Number: US-TEVA-2021-US-1918823

PATIENT
  Sex: Female

DRUGS (1)
  1. LIDOCAINE. [Suspect]
     Active Substance: LIDOCAINE
     Indication: BACK INJURY
     Dosage: TWO PATCHES AS PRESCRIBED FOR 12 HOURS
     Route: 062

REACTIONS (5)
  - Dyspnoea [Unknown]
  - Pain [Unknown]
  - Off label use [Unknown]
  - Speech disorder [Unknown]
  - Product label issue [Unknown]
